FAERS Safety Report 24609486 (Version 1)
Quarter: 2024Q4

REPORT INFORMATION
  Report Type: Spontaneous
  Country: GB (occurrence: GB)
  Receive Date: 20241112
  Receipt Date: 20241112
  Transmission Date: 20250115
  Serious: Yes (Hospitalization, Other)
  Sender: TAKEDA
  Company Number: GB-TAKEDA-2024TUS113039

PATIENT
  Sex: Male

DRUGS (4)
  1. TEDUGLUTIDE [Suspect]
     Active Substance: TEDUGLUTIDE
     Indication: Short-bowel syndrome
     Dosage: UNK
  2. TEDUGLUTIDE [Suspect]
     Active Substance: TEDUGLUTIDE
  3. TEDUGLUTIDE [Suspect]
     Active Substance: TEDUGLUTIDE
  4. TEDUGLUTIDE [Suspect]
     Active Substance: TEDUGLUTIDE

REACTIONS (15)
  - Blood magnesium decreased [Unknown]
  - Malaise [Unknown]
  - Haemorrhage [Unknown]
  - Pain [Unknown]
  - Injection site bruising [Unknown]
  - Stoma complication [Unknown]
  - Faeces hard [Unknown]
  - Vascular device infection [Unknown]
  - Dehydration [Unknown]
  - Biliary obstruction [Unknown]
  - Thirst [Unknown]
  - Weight decreased [Unknown]
  - Nausea [Unknown]
  - Injection site reaction [Unknown]
  - Abdominal pain [Unknown]
